FAERS Safety Report 6655462-6 (Version None)
Quarter: 2010Q1

REPORT INFORMATION
  Report Type: 
  Country: None (occurrence: None)
  Receive Date: 20100329
  Receipt Date: 20100324
  Transmission Date: 20100710
  Serious: Yes (Other)
  Sender: FDA-Public Use
  Company Number: US-PFIZER INC-2010037762

PATIENT
  Sex: Female

DRUGS (3)
  1. CELEBREX [Suspect]
     Dosage: UNK
  2. REBIF [Suspect]
     Indication: MULTIPLE SCLEROSIS
     Dosage: UNK
     Dates: start: 20100215, end: 20100101
  3. REBIF [Suspect]
     Dosage: 22 UG, 3 IN 1 WEEK
     Route: 058
     Dates: start: 20100302

REACTIONS (5)
  - DYSPNOEA [None]
  - PAIN [None]
  - PLEURISY [None]
  - RASH PAPULAR [None]
  - THROAT TIGHTNESS [None]
